FAERS Safety Report 19971398 (Version 2)
Quarter: 2022Q3

REPORT INFORMATION
  Report Type: Spontaneous
  Country: CA (occurrence: CA)
  Receive Date: 20211019
  Receipt Date: 20220712
  Transmission Date: 20221026
  Serious: Yes (Other)
  Sender: FDA-Public Use
  Company Number: CA-GLAXOSMITHKLINE-CA2021AMR212481

PATIENT

DRUGS (11)
  1. ALBUTEROL SULFATE [Suspect]
     Active Substance: ALBUTEROL SULFATE
     Indication: Dyspnoea
     Dosage: 2 PUFF(S), PRN AS NEEDED
     Route: 055
     Dates: start: 2021
  2. CLOBETASOL PROPIONATE [Suspect]
     Active Substance: CLOBETASOL PROPIONATE
     Indication: Skin disorder
     Dosage: UNK
     Route: 061
     Dates: start: 2021
  3. CLOZAPINE [Suspect]
     Active Substance: CLOZAPINE
     Indication: Product used for unknown indication
     Dosage: 2 DF, 25MG, IN ADDITION TO 200MG FOR TOTAL OF 250MG ORALLY AT BEDTIME
     Route: 048
     Dates: start: 2021
  4. CLOZAPINE [Suspect]
     Active Substance: CLOZAPINE
     Dosage: 1 DF
     Route: 048
  5. CLONAZEPAM [Suspect]
     Active Substance: CLONAZEPAM
     Indication: Product used for unknown indication
     Dosage: 1 DF, BID, 0.5 MG
     Route: 048
     Dates: start: 2021
  6. ATORVASTATIN CALCIUM [Suspect]
     Active Substance: ATORVASTATIN CALCIUM
     Indication: Product used for unknown indication
     Dosage: 1 DF, QD
     Route: 048
     Dates: start: 2021
  7. VALPROIC ACID [Suspect]
     Active Substance: VALPROIC ACID
     Indication: Product used for unknown indication
     Dosage: 10 ML, QD, 500MG,  BEDTIME
     Route: 048
     Dates: start: 2021
  8. PREDNISONE [Suspect]
     Active Substance: PREDNISONE
     Indication: Product used for unknown indication
     Dosage: 1 DF, QD
     Route: 048
     Dates: start: 2021
  9. DOXYCYCLINE HYCLATE [Suspect]
     Active Substance: DOXYCYCLINE HYCLATE
     Indication: Product used for unknown indication
     Dosage: 2 DF, QD, 200MG
     Route: 048
     Dates: start: 2021
  10. DOXYCYCLINE HYCLATE [Suspect]
     Active Substance: DOXYCYCLINE HYCLATE
     Dosage: 1 DF, BID
     Route: 048
  11. TIOTROPIUM BROMIDE [Suspect]
     Active Substance: TIOTROPIUM BROMIDE
     Indication: Product used for unknown indication
     Dosage: 2 PUFF(S), QD
     Route: 055
     Dates: start: 2021

REACTIONS (10)
  - Syncope [Unknown]
  - Dyspnoea [Unknown]
  - Palpitations [Unknown]
  - Fatigue [Unknown]
  - Chest pain [Unknown]
  - Presyncope [Unknown]
  - Malaise [Unknown]
  - Oedema [Unknown]
  - Pyrexia [Unknown]
  - Rash [Unknown]
